FAERS Safety Report 10861979 (Version 2)
Quarter: 2015Q1

REPORT INFORMATION
  Report Type: Spontaneous
  Country: US (occurrence: US)
  Receive Date: 20150224
  Receipt Date: 20150226
  Transmission Date: 20150721
  Serious: Yes (Other)
  Sender: FDA-Public Use
  Company Number: US-009507513-1502USA007840

PATIENT
  Age: 52 Year
  Sex: Male

DRUGS (3)
  1. ZELBORAF [Concomitant]
     Active Substance: VEMURAFENIB
     Dosage: UNK
  2. MEKINIST [Concomitant]
     Active Substance: TRAMETINIB DIMETHYL SULFOXIDE
     Dosage: UNK
  3. KEYTRUDA [Suspect]
     Active Substance: PEMBROLIZUMAB
     Indication: MALIGNANT MELANOMA
     Dosage: UNK

REACTIONS (4)
  - Decreased appetite [Unknown]
  - Melanoma recurrent [Unknown]
  - Malignant neoplasm progression [Unknown]
  - Nausea [Unknown]

NARRATIVE: CASE EVENT DATE: 201411
